FAERS Safety Report 9563631 (Version 1)
Quarter: 2013Q3

REPORT INFORMATION
  Report Type: Spontaneous
  Country: CH (occurrence: None)
  Receive Date: 20130926
  Receipt Date: 20130926
  Transmission Date: 20140515
  Serious: Yes (Hospitalization)
  Sender: FDA-Public Use
  Company Number: 20130500

PATIENT
  Age: 49 Year
  Sex: Female

DRUGS (16)
  1. VENOFER [Suspect]
     Indication: IRON DEFICIENCY ANAEMIA
     Dates: start: 20130710
  2. REMICADE (INFLIXIMAB) [Suspect]
     Indication: CROHN^S DISEASE
     Dates: start: 20130625, end: 20130731
  3. SOLUMEDROL (METHYLPREDNISOLONE SODIUM SUCCINATE) [Suspect]
     Dates: start: 20130625, end: 20130731
  4. BRILIQUE [Concomitant]
  5. HUMIRA (ADALIMUMAB) OPEN LABEL [Concomitant]
  6. IMUREL (AZATHIOPRINE) [Concomitant]
  7. IXPRIM(PARACETAMOL, TRAMADOL HYDROCHLORIDE) [Concomitant]
  8. KARDEGIC (ACETYLSALICYLATE LYSINE) [Concomitant]
  9. MOPRAL (OMEPRAZOLE) [Concomitant]
  10. PENTASA (MESALAZINE) [Concomitant]
  11. PYOSTACINE (PRISTINAMYCIN) [Concomitant]
  12. STILNOX (ZOLPIDEM TARTRATE) [Concomitant]
  13. TAHOR 9ATORVASTATIN CALCIUM) [Concomitant]
  14. TAREG (VALSARTAN) [Concomitant]
  15. TENORMINE (ATENOLOL) [Concomitant]
  16. METHOTREXATE [Concomitant]

REACTIONS (1)
  - Acute coronary syndrome [None]
